FAERS Safety Report 6446388-1 (Version None)
Quarter: 2009Q4

REPORT INFORMATION
  Report Type: 
  Country: None (occurrence: None)
  Receive Date: 20091119
  Receipt Date: 20091112
  Transmission Date: 20100525
  Serious: Yes (Death)
  Sender: FDA-Public Use
  Company Number: JP-SANOFI-AVENTIS-F01200900918

PATIENT
  Age: 86 Year
  Sex: Male
  Weight: 60 kg

DRUGS (10)
  1. CLOPIDOGREL BISULFATE [Suspect]
     Indication: ACUTE CORONARY SYNDROME
     Dosage: DOSE TEXT: STARTING DOSE
     Route: 048
     Dates: start: 20090609, end: 20090609
  2. CLOPIDOGREL BISULFATE [Suspect]
     Dosage: DOSE TEXT: STARTING DOSE
     Route: 048
     Dates: start: 20090609, end: 20090609
  3. ASPIRIN [Concomitant]
     Route: 048
     Dates: start: 20090609
  4. HEPARIN [Concomitant]
     Route: 042
     Dates: start: 20090609
  5. MORPHINE [Concomitant]
     Route: 042
     Dates: start: 20090609, end: 20090609
  6. MIOBLOCK [Concomitant]
     Route: 042
     Dates: start: 20090609, end: 20090610
  7. MIDAZOLAM HCL [Concomitant]
     Route: 042
     Dates: start: 20090609, end: 20090610
  8. DOBUTAMINE HCL [Concomitant]
     Route: 042
     Dates: start: 20090609, end: 20090610
  9. RENIVACE [Concomitant]
     Route: 048
     Dates: end: 20090609
  10. NORVASC [Concomitant]
     Route: 048
     Dates: end: 20090609

REACTIONS (1)
  - MYOCARDIAL RUPTURE [None]
